FAERS Safety Report 7585454-4 (Version None)
Quarter: 2011Q3

REPORT INFORMATION
  Report Type: 
  Country: None (occurrence: None)
  Receive Date: 20110701
  Receipt Date: 20110621
  Transmission Date: 20111222
  Serious: Yes (Hospitalization, Other)
  Sender: FDA-Public Use
  Company Number: US-BAYER-201032408NA

PATIENT
  Age: 28 Year
  Sex: Female
  Weight: 87.982 kg

DRUGS (9)
  1. COUMADIN [Concomitant]
  2. MEDROL [Concomitant]
  3. ANTICOAGULATION [Concomitant]
  4. YASMIN [Suspect]
     Dosage: UNK
     Dates: start: 20060108, end: 20070429
  5. DARVOCET-N 50 [Concomitant]
  6. YASMIN [Suspect]
     Indication: ACNE
     Dosage: UNK UNK, UNK
     Route: 065
     Dates: start: 20050404, end: 20051015
  7. PROTONIX [Concomitant]
  8. ALBUTEROL SULFATE AUTOHALER [Concomitant]
  9. NEXIUM [Concomitant]

REACTIONS (1)
  - DEEP VEIN THROMBOSIS [None]
